FAERS Safety Report 8294421-7 (Version None)
Quarter: 2012Q2

REPORT INFORMATION
  Report Type: 
  Country: None (occurrence: None)
  Receive Date: 20120418
  Receipt Date: 20120103
  Transmission Date: 20120825
  Serious: Yes (Hospitalization, Other)
  Sender: FDA-Public Use
  Company Number: PHEH2007US11369

PATIENT
  Sex: Female

DRUGS (1)
  1. ZOMETA [Suspect]
     Dosage: UNK UKN, UNK
     Dates: start: 20021105, end: 20041209

REACTIONS (53)
  - INJURY [None]
  - PAIN [None]
  - HYDRONEPHROSIS [None]
  - HYPOACUSIS [None]
  - MULTI-ORGAN FAILURE [None]
  - MALNUTRITION [None]
  - BONE MARROW OEDEMA [None]
  - SPINAL OSTEOARTHRITIS [None]
  - UROSEPSIS [None]
  - SEPSIS [None]
  - OSTEONECROSIS OF JAW [None]
  - DECREASED INTEREST [None]
  - METASTASES TO BONE [None]
  - MACROCYTOSIS [None]
  - CHILLS [None]
  - RESPIRATORY FAILURE [None]
  - ATELECTASIS [None]
  - DEVICE MALFUNCTION [None]
  - DILATATION VENTRICULAR [None]
  - BLEPHARITIS [None]
  - HYPOTENSION [None]
  - ECCHYMOSIS [None]
  - EJECTION FRACTION DECREASED [None]
  - CARDIOMYOPATHY [None]
  - HYPERTENSION [None]
  - BONE LESION [None]
  - NEPHROLITHIASIS [None]
  - OEDEMA PERIPHERAL [None]
  - RENAL FAILURE ACUTE [None]
  - ACTINIC KERATOSIS [None]
  - MITRAL VALVE INCOMPETENCE [None]
  - RENAL FAILURE CHRONIC [None]
  - BODY HEIGHT DECREASED [None]
  - SPINAL COLUMN STENOSIS [None]
  - RENAL FAILURE [None]
  - BLOOD CREATINE INCREASED [None]
  - ONYCHOMYCOSIS [None]
  - DISABILITY [None]
  - SPINAL COMPRESSION FRACTURE [None]
  - PYREXIA [None]
  - OSTEOPOROSIS [None]
  - AORTIC VALVE INCOMPETENCE [None]
  - DYSPHAGIA [None]
  - ALOPECIA [None]
  - ANXIETY [None]
  - HYPERMETABOLISM [None]
  - BACTERAEMIA [None]
  - URINARY TRACT INFECTION ENTEROCOCCAL [None]
  - LOCALISED OEDEMA [None]
  - SINGLE FUNCTIONAL KIDNEY [None]
  - SEPTIC SHOCK [None]
  - LEFT VENTRICULAR DYSFUNCTION [None]
  - FAILURE TO THRIVE [None]
